FAERS Safety Report 4623128-X (Version None)
Quarter: 2005Q1

REPORT INFORMATION
  Report Type: 
  Country: None (occurrence: None)
  Receive Date: 20050328
  Receipt Date: 20050328
  Transmission Date: 20050727
  Serious: Yes (Life-Threatening, Hospitalization, Disabling, Other)
  Sender: FDA-Public Use
  Company Number: None

PATIENT
  Age: 50 Year
  Sex: Male
  Weight: 90.7194 kg

DRUGS (1)
  1. HUMALOG [Suspect]
     Dosage: AS NEEDED 5X-10X DAILY SUBCUTANEOUS
     Route: 058

REACTIONS (4)
  - AMNESIA [None]
  - CONVULSION [None]
  - INJURY [None]
  - JOINT DISLOCATION [None]
